FAERS Safety Report 13417490 (Version 1)
Quarter: 2017Q2

REPORT INFORMATION
  Report Type: Spontaneous
  Country: FR (occurrence: FR)
  Receive Date: 20170407
  Receipt Date: 20170407
  Transmission Date: 20170830
  Serious: Yes (Hospitalization)
  Sender: FDA-Public Use
  Company Number: FR-009507513-1703FRA013151

PATIENT
  Age: 32 Year
  Sex: Male

DRUGS (8)
  1. ISOPTINE [Suspect]
     Active Substance: VERAPAMIL HYDROCHLORIDE
     Indication: TACHYCARDIA
     Dosage: UNK
     Route: 048
     Dates: start: 20161230
  2. BRICANYL [Suspect]
     Active Substance: TERBUTALINE SULFATE
     Indication: ASTHMA
     Dosage: UNK, START DATE: LONG TERM
     Route: 055
  3. SYMBICORT [Suspect]
     Active Substance: BUDESONIDE\FORMOTEROL FUMARATE DIHYDRATE
     Indication: ASTHMA
     Dosage: UNK. START DATE: LONG TERM
     Route: 055
  4. ANAPEN (EPINEPHRINE) [Suspect]
     Active Substance: EPINEPHRINE
     Indication: ASTHMA
     Dosage: UNK , PRN. START DATE: LONG TERM.
     Route: 058
  5. SPIRIVA [Suspect]
     Active Substance: TIOTROPIUM BROMIDE MONOHYDRATE
     Indication: ASTHMA
     Dosage: UNK, START DATE: LONG TERM
     Route: 055
  6. PROCORALAN [Suspect]
     Active Substance: IVABRADINE
     Indication: TACHYCARDIA
     Dosage: UNK
     Route: 048
     Dates: start: 20170211
  7. SINGULAIR [Suspect]
     Active Substance: MONTELUKAST SODIUM
     Indication: ASTHMA
     Dosage: UNK
     Route: 048
     Dates: start: 201701, end: 20170221
  8. VENTOLIN [Suspect]
     Active Substance: ALBUTEROL SULFATE
     Indication: ASTHMA
     Dosage: UNK. START DATE: LONG TERM.
     Route: 055

REACTIONS (8)
  - Condition aggravated [Not Recovered/Not Resolved]
  - Deafness [None]
  - Haematuria [None]
  - Visual acuity reduced [None]
  - Haematoma [Not Recovered/Not Resolved]
  - Ear haemorrhage [None]
  - Sinus tachycardia [Not Recovered/Not Resolved]
  - Hypertension [Not Recovered/Not Resolved]

NARRATIVE: CASE EVENT DATE: 2017
